FAERS Safety Report 4308955-0 (Version None)
Quarter: 2004Q1

REPORT INFORMATION
  Report Type: 
  Country: None (occurrence: None)
  Receive Date: 20040227
  Receipt Date: 20040218
  Transmission Date: 20041129
  Serious: Yes (Death)
  Sender: FDA-Public Use
  Company Number: 163-20785-03120055

PATIENT
  Age: 16 Year
  Sex: Male

DRUGS (4)
  1. THALOMID [Suspect]
     Indication: GLIOBLASTOMA MULTIFORME
     Dosage: 300-600, DAILY, ORAL
     Route: 048
     Dates: start: 20030901, end: 20031201
  2. DILANTIN [Concomitant]
  3. KEPPRA [Concomitant]
  4. DECADRON [Concomitant]

REACTIONS (2)
  - GLIOBLASTOMA MULTIFORME [None]
  - MALIGNANT NEOPLASM PROGRESSION [None]
